FAERS Safety Report 16453054 (Version 1)
Quarter: 2019Q2

REPORT INFORMATION
  Report Type: Report from Study
  Country: KR (occurrence: KR)
  Receive Date: 20190619
  Receipt Date: 20190619
  Transmission Date: 20190711
  Serious: Yes (Other)
  Sender: FDA-Public Use
  Company Number: KR-BAYER-2014-152418

PATIENT
  Age: 29 Year
  Sex: Male

DRUGS (2)
  1. BETAFERON [Suspect]
     Active Substance: INTERFERON BETA-1B
     Indication: MULTIPLE SCLEROSIS
     Dosage: 1 ML, QD
     Route: 058
     Dates: start: 200502
  2. BETACOMFORT [Suspect]
     Active Substance: DEVICE
     Indication: DEVICE THERAPY
     Dosage: UNK

REACTIONS (9)
  - Dizziness [None]
  - Device alarm issue [None]
  - Injection site swelling [Recovered/Resolved]
  - Injection site erythema [Recovered/Resolved]
  - Incorrect dose administered by device [None]
  - Amnesia [Not Recovered/Not Resolved]
  - Syncope [Recovered/Resolved]
  - Injection site mass [Recovered/Resolved]
  - Feeling abnormal [Not Recovered/Not Resolved]

NARRATIVE: CASE EVENT DATE: 20190607
